FAERS Safety Report 9468080 (Version 3)
Quarter: 2013Q4

REPORT INFORMATION
  Report Type: Spontaneous
  Country: AU (occurrence: AU)
  Receive Date: 20130821
  Receipt Date: 20131023
  Transmission Date: 20140711
  Serious: Yes (Other)
  Sender: FDA-Public Use
  Company Number: AU-ELI_LILLY_AND_COMPANY-AU201307003005

PATIENT
  Age: 11 Year
  Sex: Male
  Weight: 29 kg

DRUGS (3)
  1. STRATTERA [Suspect]
     Indication: ATTENTION DEFICIT/HYPERACTIVITY DISORDER
     Dosage: 10 MG, QD (FOR SEVEN DAYS)
     Route: 048
     Dates: start: 20130109, end: 20130115
  2. STRATTERA [Suspect]
     Dosage: 18 MG, QD (FOR SEVEN DAYS)
     Route: 048
     Dates: start: 20130116, end: 20130122
  3. STRATTERA [Suspect]
     Dosage: 25 MG, QD
     Route: 048
     Dates: start: 20130123, end: 20130703

REACTIONS (4)
  - Asphyxia [Recovered/Resolved]
  - Suicidal behaviour [Recovered/Resolved]
  - Suicidal ideation [Recovered/Resolved]
  - Suicide attempt [Recovered/Resolved]
